FAERS Safety Report 16799530 (Version 1)
Quarter: 2019Q3

REPORT INFORMATION
  Report Type: Report from Study
  Country: BR (occurrence: BR)
  Receive Date: 20190912
  Receipt Date: 20190912
  Transmission Date: 20191005
  Serious: Yes (Hospitalization, Other)
  Sender: FDA-Public Use
  Company Number: PHHY2019BR083925

PATIENT
  Sex: Female
  Weight: 83 kg

DRUGS (10)
  1. KISQALI [Suspect]
     Active Substance: RIBOCICLIB
     Dosage: UNK (REPORTED START DATE AS 17 JUL YEAR UNSPECIFIED)
     Route: 065
  2. LETROZOLE. [Suspect]
     Active Substance: LETROZOLE
     Indication: BREAST CANCER
     Dosage: UNK
     Route: 065
     Dates: start: 20190225
  3. KISQALI [Suspect]
     Active Substance: RIBOCICLIB
     Indication: BREAST CANCER
     Dosage: 600 MG, QD (3 WEEKS AND SUSPENDED FOR 1 WEEK)
     Route: 048
     Dates: start: 20190318
  4. FENTANYL. [Suspect]
     Active Substance: FENTANYL
     Indication: PRODUCT USED FOR UNKNOWN INDICATION
     Dosage: 12 MG, UNK
     Route: 065
  5. NOVALGINA [Concomitant]
     Active Substance: METAMIZOLE SODIUM
     Indication: PAIN
     Dosage: UNK UNK, PRN
     Route: 065
  6. LETROZOLE. [Suspect]
     Active Substance: LETROZOLE
     Indication: METASTASES TO BONE
     Dosage: UNK
     Route: 065
     Dates: start: 20190225
  7. ZOMETA [Suspect]
     Active Substance: ZOLEDRONIC ACID
     Indication: METASTASES TO BONE
     Dosage: UNK UNK, QMO
     Route: 065
  8. LETROZOLE. [Suspect]
     Active Substance: LETROZOLE
     Dosage: 2.5 MG, QD
     Route: 048
     Dates: start: 20190318
  9. TAMOXIFEN [Suspect]
     Active Substance: TAMOXIFEN
     Indication: PRODUCT USED FOR UNKNOWN INDICATION
     Dosage: UNK
     Route: 065
     Dates: start: 201801, end: 20190205
  10. ZOLADEX [Concomitant]
     Active Substance: GOSERELIN ACETATE
     Indication: METASTASES TO BONE
     Dosage: UNK, Q3MO
     Route: 065

REACTIONS (19)
  - Metastases to breast [Unknown]
  - Lymphadenopathy [Unknown]
  - Gastrointestinal infection [Unknown]
  - Abdominal pain [Unknown]
  - Duodenal obstruction [Unknown]
  - Eating disorder [Unknown]
  - Abdominal distension [Unknown]
  - Pancreatic disorder [Unknown]
  - Malaise [Unknown]
  - Drug ineffective [Unknown]
  - Spinal pain [Unknown]
  - Metastases to neck [Unknown]
  - Abdominal discomfort [Unknown]
  - Metastases to spine [Unknown]
  - Drug-induced liver injury [Unknown]
  - Vomiting [Not Recovered/Not Resolved]
  - Hiccups [Unknown]
  - Hyperhidrosis [Unknown]
  - Decreased immune responsiveness [Unknown]
